FAERS Safety Report 11730474 (Version 1)
Quarter: 2015Q4

REPORT INFORMATION
  Report Type: Spontaneous
  Country: US (occurrence: US)
  Receive Date: 20151110
  Receipt Date: 20151110
  Transmission Date: 20160304
  Serious: No
  Sender: FDA-Public Use
  Company Number: US-ELI_LILLY_AND_COMPANY-US201109004779

PATIENT
  Age: 80 Year
  Sex: Female

DRUGS (3)
  1. FORTEO [Suspect]
     Active Substance: TERIPARATIDE
     Indication: OSTEOPOROSIS
     Dosage: 20 UG, QD
     Route: 065
     Dates: start: 20110906
  2. FORTEO [Suspect]
     Active Substance: TERIPARATIDE
     Dosage: 20 UG, QD
     Route: 065
  3. FORTEO [Suspect]
     Active Substance: TERIPARATIDE
     Dosage: 20 UG, QD
     Route: 065

REACTIONS (18)
  - Contusion [Recovering/Resolving]
  - Lip swelling [Unknown]
  - Chest pain [Recovering/Resolving]
  - Fall [Recovered/Resolved]
  - Lip exfoliation [Recovering/Resolving]
  - Weight increased [Unknown]
  - Eating disorder [Unknown]
  - Cheilitis [Unknown]
  - Periodontal disease [Unknown]
  - Oral discomfort [Recovering/Resolving]
  - Injection site erythema [Unknown]
  - Injection site bruising [Not Recovered/Not Resolved]
  - Injection site haemorrhage [Unknown]
  - Chest injury [Recovering/Resolving]
  - Lip pain [Recovering/Resolving]
  - Gingival pain [Unknown]
  - Back disorder [Unknown]
  - Injection site pain [Not Recovered/Not Resolved]

NARRATIVE: CASE EVENT DATE: 201109
